FAERS Safety Report 6216973-0 (Version None)
Quarter: 2009Q2

REPORT INFORMATION
  Report Type: 
  Country: None (occurrence: None)
  Receive Date: 20090604
  Receipt Date: 20090601
  Transmission Date: 20091009
  Serious: No
  Sender: FDA-Public Use
  Company Number: 20096873

PATIENT
  Sex: Female

DRUGS (1)
  1. LIORESAL [Suspect]
     Indication: MUSCLE SPASTICITY
     Dosage: MCG, DAILY, INTRATHECAL
     Route: 037

REACTIONS (9)
  - BLOOD PRESSURE INCREASED [None]
  - CARDIAC DISORDER [None]
  - DIZZINESS [None]
  - DRUG THERAPY CHANGED [None]
  - DYSPNOEA [None]
  - INSOMNIA [None]
  - NAUSEA [None]
  - SLEEP DISORDER [None]
  - TREMOR [None]
